FAERS Safety Report 25007935 (Version 2)
Quarter: 2025Q1

REPORT INFORMATION
  Report Type: Spontaneous
  Country: US (occurrence: US)
  Receive Date: 20250225
  Receipt Date: 20250311
  Transmission Date: 20250409
  Serious: No
  Sender: TEVA
  Company Number: US-TEVA-VS-3297533

PATIENT
  Age: 73 Year
  Sex: Female
  Weight: 49.895 kg

DRUGS (3)
  1. MESALAMINE [Suspect]
     Active Substance: MESALAMINE
     Indication: Ulcer
     Dosage: 1 TABLET IN THE MORNING AND 1 TABLET IN THE EVENING
     Route: 065
     Dates: start: 2025, end: 2025
  2. MESALAMINE [Suspect]
     Active Substance: MESALAMINE
     Indication: Ulcer
     Dosage: 2 TABLETS IN THE MORNING AND 2 TABLETS IN THE NIGHT
     Route: 065
     Dates: start: 2025, end: 2025
  3. MESALAMINE [Suspect]
     Active Substance: MESALAMINE
     Indication: Ulcer
     Dosage: 1.2 GRAMS, 2 TABLETS IN THE MORNING AND 2 TABLETS IN THE EVENING (TWICE A DAY)
     Route: 065
     Dates: start: 20250123, end: 2025

REACTIONS (6)
  - Blood electrolytes decreased [Unknown]
  - Depression [Unknown]
  - Confusional state [Unknown]
  - Vomiting [Unknown]
  - Diarrhoea [Unknown]
  - Inappropriate schedule of product administration [Unknown]

NARRATIVE: CASE EVENT DATE: 20250101
